FAERS Safety Report 25656447 (Version 2)
Quarter: 2025Q3

REPORT INFORMATION
  Report Type: Spontaneous
  Country: US (occurrence: US)
  Receive Date: 20250807
  Receipt Date: 20250825
  Transmission Date: 20251020
  Serious: Yes (Death, Life-Threatening, Hospitalization)
  Sender: VERTEX
  Company Number: US-VERTEX PHARMACEUTICALS-2025-012142

PATIENT
  Sex: Female

DRUGS (8)
  1. TRIKAFTA [Suspect]
     Active Substance: ELEXACAFTOR\IVACAFTOR\TEZACAFTOR
     Indication: Cystic fibrosis
     Dosage: 2 ORANGE TABLETS BY MOUTH IN THE AM AND 1 LIGHT BLUE TABLET IN THE PM
     Route: 048
     Dates: start: 20250619, end: 20250723
  2. FASENRA [Suspect]
     Active Substance: BENRALIZUMAB
     Indication: Bronchiectasis
     Route: 058
  3. FASENRA [Suspect]
     Active Substance: BENRALIZUMAB
     Indication: Asthma
  4. AZTREONAM LYSINE [Suspect]
     Active Substance: AZTREONAM LYSINE
     Indication: Cystic fibrosis lung
     Dosage: THREE TIMES A DAY FOR 28 DAYS ON AND 28 DAYS OFF
     Dates: start: 202505
  5. CAYSTON [Concomitant]
     Active Substance: AZTREONAM
     Indication: Cystic fibrosis
  6. TOBRAMYCIN [Concomitant]
     Active Substance: TOBRAMYCIN
  7. DORNASE ALFA [Concomitant]
     Active Substance: DORNASE ALFA
  8. PULMOZYME [Concomitant]
     Active Substance: DORNASE ALFA

REACTIONS (4)
  - Cystic fibrosis [Fatal]
  - Pneumothorax [Fatal]
  - Rib fracture [Unknown]
  - Fall [Recovered/Resolved]

NARRATIVE: CASE EVENT DATE: 20250101
